FAERS Safety Report 6434026-3 (Version None)
Quarter: 2009Q4

REPORT INFORMATION
  Report Type: 
  Country: None (occurrence: None)
  Receive Date: 20091109
  Receipt Date: 20091109
  Transmission Date: 20100525
  Serious: Yes (Life-Threatening, Hospitalization)
  Sender: FDA-Public Use
  Company Number: None

PATIENT
  Sex: Female
  Weight: 50.3493 kg

DRUGS (3)
  1. NEULASTA [Suspect]
     Dosage: 6MG EVERY 3 WEEKS 4MG EVERY 3 WEEKS
     Dates: start: 20090902
  2. NEULASTA [Suspect]
     Dosage: 6MG EVERY 3 WEEKS 4MG EVERY 3 WEEKS
     Dates: start: 20090923
  3. NEULASTA [Suspect]
     Dosage: 6MG EVERY 3 WEEKS 4MG EVERY 3 WEEKS
     Dates: start: 20091014

REACTIONS (7)
  - CHILLS [None]
  - NASAL CONGESTION [None]
  - PYREXIA [None]
  - SWELLING FACE [None]
  - THROAT TIGHTNESS [None]
  - URTICARIA [None]
  - VOMITING [None]
